FAERS Safety Report 15308823 (Version 4)
Quarter: 2018Q4

REPORT INFORMATION
  Report Type: Report from Study
  Country: None (occurrence: US)
  Receive Date: 20180822
  Receipt Date: 20181129
  Transmission Date: 20190204
  Serious: Yes (Other)
  Sender: FDA-Public Use
  Company Number: US-ABBVIE-18K-163-2405763-00

PATIENT
  Age: 71 Year
  Sex: Female

DRUGS (2)
  1. HUMIRA [Suspect]
     Active Substance: ADALIMUMAB
     Indication: RHEUMATOID ARTHRITIS
     Route: 058
     Dates: start: 201807, end: 2018
  2. HUMIRA [Suspect]
     Active Substance: ADALIMUMAB
     Route: 058
     Dates: start: 2018

REACTIONS (12)
  - Infection [Unknown]
  - Stress [Unknown]
  - Unevaluable event [Unknown]
  - Procedural pain [Unknown]
  - Injection site pruritus [Unknown]
  - Irritable bowel syndrome [Unknown]
  - Erythema [Unknown]
  - Injection site bruising [Unknown]
  - Spinal compression fracture [Not Recovered/Not Resolved]
  - Rheumatoid arthritis [Unknown]
  - Condition aggravated [Unknown]
  - Contusion [Unknown]

NARRATIVE: CASE EVENT DATE: 2018
